FAERS Safety Report 9024680 (Version 3)
Quarter: 2013Q4

REPORT INFORMATION
  Report Type: Spontaneous
  Country: US (occurrence: US)
  Receive Date: 20130121
  Receipt Date: 20131105
  Transmission Date: 20140711
  Serious: Yes (Other)
  Sender: FDA-Public Use
  Company Number: US-BIOGENIDEC-2013BI003823

PATIENT
  Age: 47 Year
  Sex: Female

DRUGS (1)
  1. TYSABRI [Suspect]
     Indication: MULTIPLE SCLEROSIS
     Route: 042
     Dates: start: 20130103

REACTIONS (9)
  - Clonus [Recovered/Resolved]
  - Headache [Not Recovered/Not Resolved]
  - Asthenia [Not Recovered/Not Resolved]
  - Nausea [Recovered/Resolved]
  - Consciousness fluctuating [Recovered/Resolved]
  - Mobility decreased [Recovered/Resolved]
  - Swelling face [Recovered/Resolved]
  - Weight decreased [Not Recovered/Not Resolved]
  - Dysstasia [Recovered/Resolved]
